FAERS Safety Report 5264924-8 (Version None)
Quarter: 2007Q1

REPORT INFORMATION
  Report Type: 
  Country: None (occurrence: None)
  Receive Date: 20070314
  Receipt Date: 20070227
  Transmission Date: 20070707
  Serious: Yes (Hospitalization)
  Sender: FDA-Public Use
  Company Number: PT-AMGEN-UK213186

PATIENT
  Sex: Female
  Weight: 63 kg

DRUGS (8)
  1. NEUPOGEN [Suspect]
     Indication: NEUTROPENIA
     Route: 058
     Dates: start: 20020410
  2. VORICONAZOLE [Suspect]
     Route: 048
     Dates: start: 20020731, end: 20030723
  3. ADALAT [Concomitant]
     Route: 048
  4. DAFLON [Concomitant]
     Route: 048
  5. GLUCOBAY [Concomitant]
     Route: 048
  6. IDARUBICIN HCL [Concomitant]
     Route: 065
     Dates: start: 20020314
  7. CYTARABINE [Concomitant]
     Route: 065
     Dates: start: 20020314
  8. MITOXANTRONE [Concomitant]
     Route: 065
     Dates: start: 20020514

REACTIONS (9)
  - ANAEMIA [None]
  - BLOOD LACTATE DEHYDROGENASE INCREASED [None]
  - CATHETER RELATED COMPLICATION [None]
  - MYELOFIBROSIS [None]
  - NEUTROPENIA [None]
  - ORAL CANDIDIASIS [None]
  - PANCYTOPENIA [None]
  - THROMBOCYTOPENIA [None]
  - TRACHEOBRONCHITIS [None]
